FAERS Safety Report 8586761-9 (Version None)
Quarter: 2012Q3

REPORT INFORMATION
  Report Type: 
  Country: None (occurrence: None)
  Receive Date: 20120810
  Receipt Date: 20120806
  Transmission Date: 20120928
  Serious: Yes (Other)
  Sender: FDA-Public Use
  Company Number: US-PFIZER INC-2012191351

PATIENT
  Age: 52 Year
  Sex: Female
  Weight: 77.098 kg

DRUGS (8)
  1. SYNTHROID [Concomitant]
     Dosage: UNK
  2. ALPRAZOLAM [Concomitant]
     Dosage: UNK
  3. BYSTOLIC [Concomitant]
     Dosage: UNK
  4. COUMADIN [Concomitant]
     Indication: ARTERIAL THROMBOSIS LIMB
     Dosage: UNK
  5. CHANTIX [Suspect]
     Indication: SMOKING CESSATION THERAPY
     Dosage: 0.5 MG, 1X/DAY
     Route: 048
     Dates: start: 20070101
  6. AMLODIPINE [Concomitant]
     Dosage: UNK
  7. PLAVIX [Concomitant]
     Indication: ARTERIAL THROMBOSIS LIMB
     Dosage: UNK
  8. CHANTIX [Suspect]
     Dosage: UNK
     Route: 048
     Dates: end: 20070101

REACTIONS (1)
  - ARTERIAL THROMBOSIS LIMB [None]
